FAERS Safety Report 4807277-9 (Version None)
Quarter: 2005Q4

REPORT INFORMATION
  Report Type: 
  Country: None (occurrence: None)
  Receive Date: 20051024
  Receipt Date: 20051011
  Transmission Date: 20060501
  Serious: Yes (Life-Threatening, Hospitalization)
  Sender: FDA-Public Use
  Company Number: US-MERCK-0510USA06531

PATIENT
  Age: 37 Year
  Sex: Male

DRUGS (2)
  1. VIOXX [Suspect]
     Indication: JOINT INJURY
     Route: 048
     Dates: start: 20041211, end: 20041213
  2. ADVIL [Concomitant]
     Route: 065

REACTIONS (3)
  - ARTERIAL DISORDER [None]
  - BLOOD VISCOSITY INCREASED [None]
  - CEREBROVASCULAR ACCIDENT [None]
